FAERS Safety Report 24582863 (Version 6)
Quarter: 2025Q1

REPORT INFORMATION
  Report Type: Spontaneous
  Country: DE (occurrence: DE)
  Receive Date: 20241106
  Receipt Date: 20250301
  Transmission Date: 20250409
  Serious: Yes (Other)
  Sender: AUROBINDO
  Company Number: DE-ROCHE-10000070326

PATIENT
  Age: 16 Year
  Sex: Male
  Weight: 62.7 kg

DRUGS (61)
  1. HYDROCORTISONE [Suspect]
     Active Substance: HYDROCORTISONE
     Indication: Non-Hodgkin^s lymphoma
     Route: 037
     Dates: start: 20240726
  2. ACTEMRA [Suspect]
     Active Substance: TOCILIZUMAB
     Indication: Non-Hodgkin^s lymphoma
     Dosage: 460 MILLIGRAM, ONCE A DAY
     Route: 042
     Dates: start: 20240807
  3. CYTARABINE [Suspect]
     Active Substance: CYTARABINE
     Indication: Non-Hodgkin^s lymphoma
     Dosage: 30 MILLIGRAM, ONCE A DAY
     Route: 037
     Dates: start: 20240726
  4. MESNA [Suspect]
     Active Substance: MESNA
     Indication: Non-Hodgkin^s lymphoma
     Route: 042
     Dates: start: 20240802
  5. METHOTREXATE [Suspect]
     Active Substance: METHOTREXATE
     Indication: Non-Hodgkin^s lymphoma
     Route: 037
     Dates: start: 20240726
  6. GRANULOCYTE COLONY-STIMULATING FACTOR NOS [Suspect]
     Active Substance: GRANULOCYTE COLONY-STIMULATING FACTOR NOS
     Indication: Non-Hodgkin^s lymphoma
     Route: 058
     Dates: start: 20240805
  7. GRANULOCYTE COLONY-STIMULATING FACTOR NOS [Suspect]
     Active Substance: GRANULOCYTE COLONY-STIMULATING FACTOR NOS
     Route: 042
     Dates: start: 20240814
  8. GLOFITAMAB [Suspect]
     Active Substance: GLOFITAMAB
     Indication: Non-Hodgkin^s lymphoma
     Route: 042
     Dates: start: 20240807
  9. ACYCLOVIR [Concomitant]
     Active Substance: ACYCLOVIR
     Indication: Encephalopathy
     Dosage: 500 MILLIGRAM, ONCE A DAY
     Route: 042
     Dates: start: 20240805, end: 20240806
  10. CARBOPLATIN [Concomitant]
     Active Substance: CARBOPLATIN
     Indication: Non-Hodgkin^s lymphoma
     Route: 042
     Dates: start: 20240802
  11. Clemastina [Concomitant]
     Indication: Product used for unknown indication
     Dosage: 1.6 MILLIGRAM, ONCE A DAY
     Route: 042
     Dates: start: 20240828, end: 20240902
  12. Clemastina [Concomitant]
     Dosage: 1.4 MILLIGRAM, ONCE A DAY
     Route: 042
     Dates: start: 20240731, end: 20240814
  13. CAFFEINE [Concomitant]
     Active Substance: CAFFEINE
     Indication: Headache
     Dosage: 200 MILLIGRAM, ONCE A DAY
     Route: 048
     Dates: start: 20240727, end: 20240905
  14. CHOLECALCIFEROL [Concomitant]
     Active Substance: CHOLECALCIFEROL
     Indication: Product used for unknown indication
     Dosage: 200 INTERNATIONAL UNIT, EVERY WEEK
     Route: 048
     Dates: start: 20240724, end: 20240731
  15. SULFAMETHOXAZOLE\TRIMETHOPRIM [Concomitant]
     Active Substance: SULFAMETHOXAZOLE\TRIMETHOPRIM
     Indication: Product used for unknown indication
     Dosage: 160 MILLIGRAM, ONCE A DAY
     Route: 048
     Dates: start: 20240723, end: 20240723
  16. SULFAMETHOXAZOLE\TRIMETHOPRIM [Concomitant]
     Active Substance: SULFAMETHOXAZOLE\TRIMETHOPRIM
     Dosage: 320 MILLIGRAM, TWO TIMES A DAY
     Route: 048
     Dates: start: 20240726, end: 20240913
  17. SULFAMETHOXAZOLE\TRIMETHOPRIM [Concomitant]
     Active Substance: SULFAMETHOXAZOLE\TRIMETHOPRIM
     Dosage: 80 MILLIGRAM, ONCE A DAY
     Route: 048
     Dates: start: 20240723
  18. DEXAMETHASONE [Concomitant]
     Active Substance: DEXAMETHASONE
     Indication: Encephalopathy
     Dosage: 5 MILLIGRAM, ONCE A DAY
     Route: 042
     Dates: start: 20240805, end: 20240805
  19. DEXAMETHASONE [Concomitant]
     Active Substance: DEXAMETHASONE
     Dosage: 5 MILLIGRAM, TWO TIMES A DAY
     Route: 042
     Dates: start: 20240806, end: 20240806
  20. DEXAMETHASONE [Concomitant]
     Active Substance: DEXAMETHASONE
     Dosage: 8 MILLIGRAM, TWO TIMES A DAY
     Route: 042
     Dates: start: 20240802, end: 20240804
  21. ENOXAPARIN [Concomitant]
     Active Substance: ENOXAPARIN
     Indication: Product used for unknown indication
     Dosage: UNK, ONCE A DAY
     Route: 058
     Dates: start: 20240806, end: 20240808
  22. ENOXAPARIN [Concomitant]
     Active Substance: ENOXAPARIN
     Dosage: UNK, ONCE A DAY
     Route: 058
     Dates: start: 20240730, end: 20240803
  23. ETOPOSIDE [Concomitant]
     Active Substance: ETOPOSIDE
     Indication: Non-Hodgkin^s lymphoma
     Dosage: 176 MILLIGRAM, ONCE A DAY
     Route: 042
     Dates: start: 20240802
  24. HUMAN RED BLOOD CELL [Concomitant]
     Active Substance: HUMAN RED BLOOD CELL
     Indication: Anaemia
     Route: 042
     Dates: start: 20240805
  25. FUROSEMIDE [Concomitant]
     Active Substance: FUROSEMIDE
     Indication: Weight increased
     Route: 042
     Dates: start: 20240803, end: 20240803
  26. GENTAMICIN [Concomitant]
     Active Substance: GENTAMICIN
     Indication: Encephalopathy
     Dosage: 250 MILLIGRAM, ONCE A DAY
     Route: 042
     Dates: start: 20240805, end: 20240805
  27. IFOSFAMIDE [Concomitant]
     Active Substance: IFOSFAMIDE
     Indication: Non-Hodgkin^s lymphoma
     Route: 042
     Dates: start: 20240802
  28. LEVETIRACETAM [Concomitant]
     Active Substance: LEVETIRACETAM
     Indication: Encephalopathy
     Dosage: 500 MILLIGRAM, TWO TIMES A DAY
     Route: 042
     Dates: start: 20240804, end: 20240812
  29. MELATONIN [Concomitant]
     Active Substance: MELATONIN
     Indication: Product used for unknown indication
     Dosage: 5 MILLIGRAM, ONCE A DAY
     Route: 048
     Dates: start: 20240802, end: 20240803
  30. MELATONIN [Concomitant]
     Active Substance: MELATONIN
     Dosage: 5 MILLIGRAM, ONCE A DAY
     Route: 048
     Dates: start: 20240806, end: 20240913
  31. MELATONIN [Concomitant]
     Active Substance: MELATONIN
     Dosage: 2 MILLIGRAM, ONCE A DAY
     Route: 048
     Dates: start: 20240727, end: 20240801
  32. MEROPENEM [Concomitant]
     Active Substance: MEROPENEM
     Indication: Encephalopathy
     Dosage: 2 GRAM, ONCE A DAY
     Route: 042
     Dates: start: 20240808, end: 20240808
  33. MEROPENEM [Concomitant]
     Active Substance: MEROPENEM
     Route: 042
     Dates: start: 20240809, end: 20240811
  34. MEROPENEM [Concomitant]
     Active Substance: MEROPENEM
     Dosage: 2 GRAM, TWO TIMES A DAY
     Route: 042
     Dates: start: 20240805, end: 20240806
  35. METHYLPREDNISOLONE [Concomitant]
     Active Substance: METHYLPREDNISOLONE
     Indication: Product used for unknown indication
     Dosage: 120 MILLIGRAM, ONCE A DAY
     Route: 042
     Dates: start: 20240828, end: 20240828
  36. METHYLPREDNISOLONE [Concomitant]
     Active Substance: METHYLPREDNISOLONE
     Route: 042
     Dates: start: 20240731, end: 20240814
  37. METHYLENE BLUE [Concomitant]
     Active Substance: METHYLENE BLUE
     Indication: Encephalopathy
     Dosage: 50 MILLIGRAM, ONCE A DAY
     Route: 042
     Dates: start: 20240804, end: 20240806
  38. ONDANSETRON [Concomitant]
     Active Substance: ONDANSETRON
     Indication: Encephalopathy
     Dosage: 8 MILLIGRAM, TWO TIMES A DAY
     Route: 042
     Dates: start: 20240802, end: 20240802
  39. ONDANSETRON [Concomitant]
     Active Substance: ONDANSETRON
     Route: 042
     Dates: start: 20240803, end: 20240803
  40. ONDANSETRON [Concomitant]
     Active Substance: ONDANSETRON
     Dosage: 8 MILLIGRAM, FOUR TIMES/DAY
     Route: 042
     Dates: start: 20240804, end: 20240804
  41. ONDANSETRON [Concomitant]
     Active Substance: ONDANSETRON
     Dosage: 8 MILLIGRAM, TWO TIMES A DAY
     Route: 042
     Dates: start: 20240805, end: 20240805
  42. ONDANSETRON [Concomitant]
     Active Substance: ONDANSETRON
     Dosage: 8 MILLIGRAM, TWO TIMES A DAY
     Route: 042
     Dates: start: 20240806, end: 20240811
  43. OBINUTUZUMAB [Concomitant]
     Active Substance: OBINUTUZUMAB
     Indication: Non-Hodgkin^s lymphoma
     Route: 042
     Dates: start: 20240731
  44. ACETAMINOPHEN [Concomitant]
     Active Substance: ACETAMINOPHEN
     Indication: Product used for unknown indication
     Route: 042
     Dates: start: 20240727
  45. PANTOPRAZOLE SODIUM [Concomitant]
     Active Substance: PANTOPRAZOLE SODIUM
     Indication: Product used for unknown indication
     Dosage: 40 MILLIGRAM, ONCE A DAY
     Route: 048
     Dates: start: 20240728, end: 20240907
  46. POSACONAZOLE [Concomitant]
     Active Substance: POSACONAZOLE
     Indication: Product used for unknown indication
     Dosage: 300 MILLIGRAM, ONCE A DAY
     Route: 048
     Dates: start: 20240731
  47. RASBURICASE [Concomitant]
     Active Substance: RASBURICASE
     Indication: Tumour lysis syndrome
     Route: 042
     Dates: start: 20240804, end: 20240804
  48. TRANEXAMIC ACID [Concomitant]
     Active Substance: TRANEXAMIC ACID
     Indication: Epistaxis
     Route: 065
     Dates: start: 20240812
  49. PLATELETS [Concomitant]
     Active Substance: HUMAN PLATELET, ALLOGENIC
     Indication: Platelet count decreased
     Route: 042
     Dates: start: 20240804
  50. VANCOMYCIN [Concomitant]
     Active Substance: VANCOMYCIN
     Indication: Encephalopathy
     Route: 042
     Dates: start: 20240805, end: 20240805
  51. VANCOMYCIN [Concomitant]
     Active Substance: VANCOMYCIN
     Dosage: 750 MILLIGRAM, ONCE A DAY
     Route: 042
     Dates: start: 20240806, end: 20240806
  52. VANCOMYCIN [Concomitant]
     Active Substance: VANCOMYCIN
     Dosage: 280 MILLIGRAM, TWO TIMES A DAY
     Route: 048
     Dates: start: 20240808, end: 20240808
  53. VANCOMYCIN [Concomitant]
     Active Substance: VANCOMYCIN
     Dosage: 280 MILLIGRAM, TWO TIMES A DAY
     Route: 042
     Dates: start: 20240809, end: 20240809
  54. MICAFUNGIN [Concomitant]
     Active Substance: MICAFUNGIN SODIUM
     Indication: Product used for unknown indication
     Dosage: 200 MILLIGRAM, TWO TIMES A DAY
     Route: 042
     Dates: start: 20240809, end: 20240830
  55. METAMIZOL [Concomitant]
     Active Substance: METAMIZOLE SODIUM
     Indication: Product used for unknown indication
     Route: 048
     Dates: start: 20240727, end: 20240807
  56. DIMENHYDRINATE [Concomitant]
     Active Substance: DIMENHYDRINATE
     Indication: Product used for unknown indication
     Route: 042
     Dates: start: 20240804, end: 20240804
  57. NALOXONE [Concomitant]
     Active Substance: NALOXONE
     Indication: Product used for unknown indication
     Dosage: 0.34 MILLIGRAM, ONCE A DAY
     Route: 042
     Dates: start: 20240808, end: 20240820
  58. FILGRASTIM [Concomitant]
     Active Substance: FILGRASTIM
     Indication: Product used for unknown indication
     Dosage: 300 MICROGRAM, ONCE A DAY
     Route: 058
     Dates: start: 20240806, end: 20240806
  59. FILGRASTIM [Concomitant]
     Active Substance: FILGRASTIM
     Dosage: 300 MICROGRAM, ONCE A DAY
     Route: 058
     Dates: start: 20240808, end: 20240812
  60. TRAMADOL [Concomitant]
     Active Substance: TRAMADOL
     Indication: Product used for unknown indication
     Route: 042
     Dates: start: 20240808, end: 20240808
  61. HYDROMORPHONE HYDROCHLORIDE [Concomitant]
     Active Substance: HYDROMORPHONE HYDROCHLORIDE
     Indication: Product used for unknown indication
     Route: 042
     Dates: start: 20240808, end: 20240823

REACTIONS (2)
  - Cytokine release syndrome [Recovered/Resolved]
  - Headache [Recovered/Resolved]

NARRATIVE: CASE EVENT DATE: 20240807
